FAERS Safety Report 12878044 (Version 2)
Quarter: 2016Q4

REPORT INFORMATION
  Report Type: Report from Study
  Country: US (occurrence: US)
  Receive Date: 20161024
  Receipt Date: 20161104
  Transmission Date: 20170207
  Serious: Yes (Other)
  Sender: FDA-Public Use
  Company Number: US-BAYER-2016-146614

PATIENT
  Age: 61 Year
  Sex: Male

DRUGS (2)
  1. STIVARGA [Suspect]
     Active Substance: REGORAFENIB
     Indication: COLORECTAL CANCER
     Dosage: 120 MG, QD
     Route: 048
     Dates: start: 20160723, end: 20160819
  2. STIVARGA [Suspect]
     Active Substance: REGORAFENIB
     Indication: COLORECTAL CANCER
     Dosage: 80 MG, QD
     Route: 048
     Dates: start: 20160820

REACTIONS (27)
  - Alopecia [None]
  - Hyperphagia [None]
  - Dry mouth [None]
  - Headache [None]
  - Pain in extremity [Recovered/Resolved]
  - Blood bilirubin increased [None]
  - Paraesthesia [None]
  - Back pain [Recovered/Resolved]
  - Oral pain [None]
  - Skin fissures [Recovering/Resolving]
  - Blood pressure increased [Recovering/Resolving]
  - Pain in extremity [Recovering/Resolving]
  - Weight decreased [None]
  - Glossodynia [None]
  - Muscular weakness [None]
  - Limb discomfort [Recovering/Resolving]
  - Skin disorder [None]
  - Pain [None]
  - Pain of skin [Recovering/Resolving]
  - Colorectal cancer [None]
  - Fatigue [None]
  - Gait disturbance [Recovering/Resolving]
  - Tumour marker decreased [None]
  - Blood pressure increased [None]
  - Palmar-plantar erythrodysaesthesia syndrome [None]
  - Skin exfoliation [None]
  - Dysphonia [None]

NARRATIVE: CASE EVENT DATE: 2016
